FAERS Safety Report 8462016-8 (Version None)
Quarter: 2012Q2

REPORT INFORMATION
  Report Type: 
  Country: None (occurrence: None)
  Receive Date: 20120323
  Receipt Date: 20111028
  Transmission Date: 20120825
  Serious: Yes (Other)
  Sender: FDA-Public Use
  Company Number: 163-21880-11100491

PATIENT
  Age: 73 Year
  Sex: Female
  Weight: 62.5964 kg

DRUGS (9)
  1. ASPIRIN [Concomitant]
  2. COD LIVER OIL FORTIFIED TAB [Concomitant]
  3. ACETAMINOPHEN [Concomitant]
  4. VELCADE [Concomitant]
  5. IRON (IRON) [Concomitant]
  6. LENALIDOMIDE [Suspect]
     Indication: MULTIPLE MYELOMA
     Dosage: 25 MG, DAILY FOR 21 DAYS, PO
     Route: 048
     Dates: start: 20110303
  7. DECADRON [Concomitant]
  8. AREDIA [Concomitant]
  9. ARANESP [Concomitant]

REACTIONS (2)
  - DEEP VEIN THROMBOSIS [None]
  - OEDEMA PERIPHERAL [None]
